FAERS Safety Report 4745421-2 (Version None)
Quarter: 2005Q3

REPORT INFORMATION
  Report Type: 
  Country: None (occurrence: None)
  Receive Date: 20050815
  Receipt Date: 20050808
  Transmission Date: 20060218
  Serious: Yes (Other)
  Sender: FDA-Public Use
  Company Number: PHFR2005GB02697

PATIENT
  Age: 57 Year
  Sex: Female

DRUGS (26)
  1. ASPIRIN [Concomitant]
     Dosage: 75MG/DAY
     Route: 065
  2. ALBUTEROL SULFATE HFA [Concomitant]
     Dosage: 1-2 PUFFS QID
     Route: 065
  3. RAMIPRIL [Concomitant]
     Dosage: 10 MG, QD
     Route: 065
  4. METFORMIN HCL [Concomitant]
     Dosage: 500 MG, TID
     Route: 065
  5. SERETIDE [Concomitant]
     Dosage: 2 PUFFS, BID
     Route: 065
  6. ISOTARD [Concomitant]
     Dosage: 60 MG, QD
     Route: 065
  7. GLYCERYL TRINITRATE [Concomitant]
     Dosage: 400 UG, QD
     Route: 065
  8. LIQUID PARAFFIN-POLYETHYLENE [Concomitant]
     Dosage: NOCTE
     Route: 047
  9. CARBOMER [Concomitant]
     Dosage: 0.2 %, BID
     Route: 065
  10. SENNA [Concomitant]
     Dosage: 7.5MG 1-2 NOCTE
     Route: 065
  11. QUININE SULFATE [Concomitant]
     Dosage: 300MG/DAY
     Route: 065
  12. DILTIAZEM [Concomitant]
     Dosage: 300 UG, QD
     Route: 048
  13. MAGNESIUM TRISILICATE MIXTURE [Concomitant]
     Dosage: 10 ML, TID
     Route: 065
  14. AMITRIPTYLINE HCL [Concomitant]
     Dosage: 10 MG, DAY
     Route: 065
  15. NICORANDIL [Concomitant]
     Dosage: 20 MG, BID
     Route: 065
  16. LANTUS [Concomitant]
     Route: 065
  17. ACETAMINOPHEN W/ CODEINE [Concomitant]
     Dosage: 1-2 TID PRN
     Route: 065
  18. NATEGLINIDE [Suspect]
     Indication: DIABETES MELLITUS
     Dosage: 60MG/DAY
     Route: 048
     Dates: start: 20050223
  19. ALENDRONIC ACID [Concomitant]
     Dosage: 70MG WEEKLY
     Route: 065
  20. LEVOTHYROXINE SODIUM [Concomitant]
     Dosage: 50-100UG QD
     Route: 065
  21. HYDROCORTISONE [Concomitant]
     Dosage: UNK, BID
     Route: 065
  22. MICONAZOLE [Concomitant]
     Dosage: UNK, BID
     Route: 065
  23. RANITIDINE [Concomitant]
     Dosage: 150 MG, BID
     Route: 065
  24. ADCAL-D3 [Concomitant]
     Dosage: UNK, QD
     Route: 065
  25. DOXAZOSIN [Concomitant]
     Dosage: 4 MG, QD
     Route: 065
  26. ATORVASTATIN CALCIUM [Concomitant]
     Dosage: 20MG/DAY
     Route: 065

REACTIONS (3)
  - CONDITION AGGRAVATED [None]
  - HEPATIC FUNCTION ABNORMAL [None]
  - RENAL IMPAIRMENT [None]
